FAERS Safety Report 7955080-3 (Version None)
Quarter: 2011Q4

REPORT INFORMATION
  Report Type: 
  Country: None (occurrence: None)
  Receive Date: 20111129
  Receipt Date: 20111104
  Transmission Date: 20120403
  Serious: Yes (Death, Hospitalization)
  Sender: FDA-Public Use
  Company Number: COL_10301_2011

PATIENT
  Age: 22 Year
  Sex: Male

DRUGS (3)
  1. CHLORHEXIDINE GLUCONATE [Suspect]
     Indication: MUCOSAL INFLAMMATION
     Dosage: NI/NI/ORAL
     Route: 048
     Dates: start: 20110201, end: 20110601
  2. CHLORHEXIDINE GLUCONATE [Suspect]
     Indication: GINGIVITIS
     Dosage: NI/NI/ORAL
     Route: 048
     Dates: start: 20110201, end: 20110601
  3. CHLORHEXIDINE GLUCONATE [Suspect]
     Indication: POSTOPERATIVE WOUND INFECTION
     Dosage: NI/NI/ORAL
     Route: 048
     Dates: start: 20110201, end: 20110601

REACTIONS (1)
  - VIRAL MYOCARDITIS [None]
